FAERS Safety Report 4791812-3 (Version None)
Quarter: 2005Q4

REPORT INFORMATION
  Report Type: 
  Country: None (occurrence: None)
  Receive Date: 20051005
  Receipt Date: 20050920
  Transmission Date: 20060501
  Serious: Yes (Death)
  Sender: FDA-Public Use
  Company Number: 216561

PATIENT
  Age: 66 Year
  Sex: Male
  Weight: 92 kg

DRUGS (19)
  1. RITUXIMAB(RITUXIMAB) CONC FOR SOLUTION FOR INFUSION [Suspect]
     Indication: CHRONIC LYMPHOCYTIC LEUKAEMIA
     Dosage: 500 MG/M2, Q28D, INTRAVENOUS
     Route: 042
     Dates: start: 20050407, end: 20050519
  2. CYCLOPHOSPHAMIDE [Suspect]
     Indication: CHRONIC LYMPHOCYTIC LEUKAEMIA
     Dosage: 250 MG/M2, Q28D, INTRAVENOUS
     Route: 042
     Dates: start: 20050408, end: 20050521
  3. FLUDARABINE PHOSPHATE [Suspect]
     Indication: CHRONIC LYMPHOCYTIC LEUKAEMIA
     Dosage: 25 MG/M2, Q28D, INTRAVENOUS
     Route: 042
     Dates: start: 20050408, end: 20050521
  4. METOPROLOL TARTRATE [Concomitant]
  5. ISOSORBIDE MONONITRATE [Concomitant]
  6. ALLOPURINOL [Concomitant]
  7. AMLODIPINE BESYLATE [Concomitant]
  8. VALIUM [Concomitant]
  9. VORICONAZOLE (VORICONAZOLE) [Concomitant]
  10. ENALAPRIL MALEATE [Concomitant]
  11. VANCOMYCIN HYDROCHLORIDE [Concomitant]
  12. SALINE INFUSION (SODIUM CHLORIDE) [Concomitant]
  13. FINASTERIDE [Concomitant]
  14. ACICLOVIRUM (ACYCLOVIR) [Concomitant]
  15. CIPROFLOXACIN HCL (CIPROFLOXACIN HYDROCHLORIDE) [Concomitant]
  16. SULFAMERAZIN W TRIMETHOPRIM (TRIMETHOPRIM, SULFAMERAZINE) [Concomitant]
  17. ACETAMINOPHEN [Concomitant]
  18. LORATADINE [Concomitant]
  19. MOXIFLOXACIN HCL [Concomitant]

REACTIONS (11)
  - BLOOD CREATININE INCREASED [None]
  - BONE MARROW FAILURE [None]
  - CREATININE RENAL CLEARANCE DECREASED [None]
  - GASTROINTESTINAL HAEMORRHAGE [None]
  - HAEMOPTYSIS [None]
  - HEPATIC ENZYME INCREASED [None]
  - INTERNATIONAL NORMALISED RATIO INCREASED [None]
  - PNEUMONIA [None]
  - PROTHROMBIN TIME SHORTENED [None]
  - RESPIRATORY DISORDER [None]
  - SEPTIC SHOCK [None]
